FAERS Safety Report 15424819 (Version 3)
Quarter: 2020Q3

REPORT INFORMATION
  Report Type: Report from Study
  Country: KR (occurrence: KR)
  Receive Date: 20180925
  Receipt Date: 20181102
  Transmission Date: 20201104
  Serious: Yes (Death, Hospitalization)
  Sender: FDA-Public Use
  Company Number: KR-JNJFOC-20160808513

PATIENT
  Age: 74 Year
  Sex: Male
  Weight: 59.5 kg

DRUGS (41)
  1. THEOBROMINE [Concomitant]
     Active Substance: THEOBROMINE
     Indication: ATELECTASIS
     Route: 048
     Dates: start: 20160531
  2. ALBIS [Concomitant]
     Active Substance: BISMUTH SUBCITRATE\RANITIDINE HYDROCHLORIDE\SUCRALFATE
     Indication: MUSCULOSKELETAL PAIN
     Route: 048
     Dates: start: 20160630
  3. GEMIFLOXACIN [Concomitant]
     Active Substance: GEMIFLOXACIN
     Indication: BRONCHITIS
     Route: 065
  4. ZOLADEX [Concomitant]
     Active Substance: GOSERELIN ACETATE
     Route: 058
  5. CELECOXIB. [Suspect]
     Active Substance: CELECOXIB
     Indication: PRODUCT USED FOR UNKNOWN INDICATION
     Route: 065
  6. THEOBROMINE [Concomitant]
     Active Substance: THEOBROMINE
     Indication: COUGH
     Route: 048
     Dates: start: 20160531
  7. ERDOSTEINE [Concomitant]
     Active Substance: ERDOSTEINE
     Indication: ATELECTASIS
     Route: 048
     Dates: start: 20160531
  8. DEXAMETHASONE SODIUM PHOSPHATE. [Concomitant]
     Active Substance: DEXAMETHASONE SODIUM PHOSPHATE
     Indication: MUSCULOSKELETAL PAIN
     Route: 030
     Dates: start: 20160728
  9. TOPISAL [Concomitant]
     Indication: DRUG ERUPTION
     Route: 065
  10. ANEPOL [Concomitant]
     Route: 065
  11. HARNAL [Concomitant]
     Active Substance: TAMSULOSIN HYDROCHLORIDE
     Indication: DYSURIA
     Route: 048
     Dates: start: 20160428, end: 20160801
  12. THEOBROMINE [Concomitant]
     Active Substance: THEOBROMINE
     Indication: BRONCHITIS
     Route: 048
     Dates: start: 20160531
  13. TALION (BEPOTASTINE BESYLATE) [Concomitant]
     Active Substance: BEPOTASTINE BESYLATE
     Indication: DRUG ERUPTION
     Route: 048
     Dates: start: 20160802, end: 20160805
  14. MOTILIUM [Concomitant]
     Active Substance: DOMPERIDONE
     Indication: GASTRITIS PROPHYLAXIS
     Route: 048
     Dates: start: 20160802
  15. THEOBROMINE [Concomitant]
     Active Substance: THEOBROMINE
     Indication: PRODUCTIVE COUGH
     Route: 048
     Dates: start: 20160426
  16. ERDOSTEINE [Concomitant]
     Active Substance: ERDOSTEINE
     Indication: PRODUCTIVE COUGH
     Route: 048
     Dates: start: 20160531
  17. XATRAL [Concomitant]
     Active Substance: ALFUZOSIN
     Indication: DYSURIA
     Route: 048
     Dates: start: 201608
  18. MOMETASONE FUROATE. [Concomitant]
     Active Substance: MOMETASONE FUROATE
     Indication: DRUG ERUPTION
     Route: 061
     Dates: start: 20160802, end: 20160805
  19. PENIRAMIN [Concomitant]
     Indication: DRUG ERUPTION
     Route: 030
     Dates: start: 20160802, end: 20160802
  20. THEOBROMINE [Concomitant]
     Active Substance: THEOBROMINE
     Indication: BRONCHITIS
     Route: 048
     Dates: start: 20160426
  21. ERDOSTEINE [Concomitant]
     Active Substance: ERDOSTEINE
     Indication: BRONCHITIS
     Route: 048
     Dates: start: 20160531
  22. OPALMON [Concomitant]
     Active Substance: LIMAPROST
     Indication: MUSCULOSKELETAL PAIN
     Route: 048
     Dates: start: 20160630
  23. ISOPROPANOL [Concomitant]
     Active Substance: ISOPROPANOLAMINE
     Indication: BRONCHITIS
     Route: 065
  24. CURAN [Concomitant]
     Active Substance: RANITIDINE HYDROCHLORIDE
     Indication: PROPHYLAXIS
     Route: 065
  25. JNJ?56021927 [Suspect]
     Active Substance: APALUTAMIDE
     Indication: PROSTATE CANCER
     Route: 048
     Dates: start: 20160705, end: 20160727
  26. THEOBROMINE [Concomitant]
     Active Substance: THEOBROMINE
     Indication: PRODUCTIVE COUGH
     Route: 048
     Dates: start: 20160531
  27. THEOBROMINE [Concomitant]
     Active Substance: THEOBROMINE
     Indication: COUGH
     Route: 048
     Dates: start: 20160426
  28. BUPRENORPHINE. [Concomitant]
     Active Substance: BUPRENORPHINE
     Indication: MUSCULOSKELETAL PAIN
     Route: 065
     Dates: start: 20160630
  29. ACELEX [Concomitant]
     Indication: MUSCULOSKELETAL PAIN
     Route: 048
     Dates: start: 20160630
  30. ADIPAM [HYDROXYZINE HYDROCHLORIDE] [Concomitant]
     Active Substance: HYDROXYZINE HYDROCHLORIDE
     Indication: DRUG ERUPTION
     Route: 048
     Dates: start: 20160702, end: 20160805
  31. DEXAMETHASONE SODIUM PHOSPHATE. [Concomitant]
     Active Substance: DEXAMETHASONE SODIUM PHOSPHATE
     Indication: NECK PAIN
     Route: 030
     Dates: start: 20160728
  32. TYLENOL [Concomitant]
     Active Substance: ACETAMINOPHEN
     Indication: BRONCHITIS
     Route: 065
  33. OMNIPAQUE [Concomitant]
     Active Substance: IOHEXOL
     Route: 065
  34. PRECEDEX [Concomitant]
     Active Substance: DEXMEDETOMIDINE HYDROCHLORIDE
     Indication: PROPHYLAXIS
     Route: 065
  35. URSA [Concomitant]
     Active Substance: URSODIOL
     Indication: ACUTE KIDNEY INJURY
     Route: 065
     Dates: start: 20160811, end: 20160812
  36. PLACEBO [Suspect]
     Active Substance: UNSPECIFIED INGREDIENT
     Indication: PROSTATE CANCER
     Route: 048
     Dates: start: 20160705, end: 20160727
  37. THEOBROMINE [Concomitant]
     Active Substance: THEOBROMINE
     Indication: ATELECTASIS
     Route: 048
     Dates: start: 20160426
  38. AROBEST [Concomitant]
     Indication: MUSCULOSKELETAL PAIN
     Route: 048
     Dates: start: 20160630
  39. METHYLPREDNISOLONE. [Concomitant]
     Active Substance: METHYLPREDNISOLONE
     Indication: DRUG ERUPTION
     Route: 048
     Dates: start: 20160702, end: 20160805
  40. GEMIFLOXACIN [Concomitant]
     Active Substance: GEMIFLOXACIN
     Indication: PRODUCTIVE COUGH
     Route: 065
  41. MIDAZOLAM HYDROCHLORIDE. [Concomitant]
     Active Substance: MIDAZOLAM HYDROCHLORIDE
     Indication: PROPHYLAXIS
     Route: 065

REACTIONS (3)
  - Toxic epidermal necrolysis [Not Recovered/Not Resolved]
  - Pneumonia [Fatal]
  - Acute kidney injury [Not Recovered/Not Resolved]

NARRATIVE: CASE EVENT DATE: 20160730
